FAERS Safety Report 7977357-8 (Version None)
Quarter: 2011Q4

REPORT INFORMATION
  Report Type: 
  Country: None (occurrence: None)
  Receive Date: 20111213
  Receipt Date: 20110701
  Transmission Date: 20120403
  Serious: Yes (Hospitalization, Other)
  Sender: FDA-Public Use
  Company Number: PHHY2011US58952

PATIENT
  Age: 94 Year
  Sex: Female

DRUGS (10)
  1. DIOVAN [Suspect]
     Indication: BLOOD PRESSURE ABNORMAL
     Dosage: 1 DF (AT 12.30 PM), DAILY
     Route: 048
  2. IRON [Concomitant]
     Dosage: UNK UKN, UNK
  3. LIPASE [Concomitant]
     Dosage: UNK UKN, UNK
  4. ASPIRIN [Concomitant]
     Dosage: UNK UKN, UNK
  5. DILTIAZEM [Suspect]
     Dosage: 1 DF, 180 MG (IN THE EVENING)
     Route: 048
  6. ATENOLOL [Suspect]
     Indication: BLOOD PRESSURE ABNORMAL
     Dosage: 1 DF (IN THE EVENING), DAILY
  7. CALCIUM D [Concomitant]
     Dosage: UNK UKN, UNK
  8. LOPID [Concomitant]
     Dosage: UNK UKN, UNK
  9. DILTIAZEM [Suspect]
     Indication: BLOOD PRESSURE ABNORMAL
     Dosage: 1 DF, 240 MG (IN THE MORNING WITH BREAKFAST)
     Route: 048
     Dates: start: 20110618, end: 20110618
  10. ATENOLOL [Suspect]
     Dosage: 25 MG, UNK

REACTIONS (20)
  - UNRESPONSIVE TO STIMULI [None]
  - TREMOR [None]
  - HEART RATE DECREASED [None]
  - SPEECH DISORDER [None]
  - FATIGUE [None]
  - FEELING COLD [None]
  - HYPERTENSION [None]
  - VOMITING [None]
  - WRONG DRUG ADMINISTERED [None]
  - RENAL DISORDER [None]
  - BLOOD GLUCOSE INCREASED [None]
  - DEHYDRATION [None]
  - HYPERHIDROSIS [None]
  - NAUSEA [None]
  - PYREXIA [None]
  - HEADACHE [None]
  - OVERDOSE [None]
  - BLOOD PRESSURE INADEQUATELY CONTROLLED [None]
  - BRADYCARDIA [None]
  - MALAISE [None]
